FAERS Safety Report 7515528-5 (Version None)
Quarter: 2011Q2

REPORT INFORMATION
  Report Type: 
  Country: None (occurrence: None)
  Receive Date: 20110601
  Receipt Date: 20100625
  Transmission Date: 20111010
  Serious: Yes (Other)
  Sender: FDA-Public Use
  Company Number: US-PFIZER INC-2010045430

PATIENT
  Sex: Female
  Weight: 68.934 kg

DRUGS (2)
  1. CHANTIX [Suspect]
     Indication: SMOKING CESSATION THERAPY
     Dosage: 0.5 MG, 1X/DAY
     Dates: start: 20100322, end: 20100301
  2. CHANTIX [Suspect]
     Indication: TOBACCO USER
     Dosage: 1 MG, 2X/DAY
     Route: 048
     Dates: start: 20100301

REACTIONS (7)
  - NASOPHARYNGITIS [None]
  - MALAISE [None]
  - MENSTRUATION IRREGULAR [None]
  - SLEEP DISORDER [None]
  - SINUS DISORDER [None]
  - ASTHENIA [None]
  - WEIGHT INCREASED [None]
